FAERS Safety Report 22377379 (Version 1)
Quarter: 2023Q2

REPORT INFORMATION
  Report Type: Spontaneous
  Country: EG (occurrence: EG)
  Receive Date: 20230529
  Receipt Date: 20230529
  Transmission Date: 20230721
  Serious: Yes (Other)
  Sender: FDA-Public Use
  Company Number: EG-ABBOTT-2023A-1364207

PATIENT
  Age: 30 Year
  Sex: Female
  Weight: 55 kg

DRUGS (3)
  1. CLARITHROMYCIN [Suspect]
     Active Substance: CLARITHROMYCIN
     Indication: Influenza
     Route: 048
     Dates: start: 20230506, end: 20230508
  2. CLARITHROMYCIN [Suspect]
     Active Substance: CLARITHROMYCIN
     Indication: Influenza
     Route: 048
  3. ERGOTAMINE [Suspect]
     Active Substance: CAFFEINE\ERGOTAMINE\ERGOTAMINE TARTRATE
     Indication: Migraine
     Route: 048

REACTIONS (1)
  - Ischaemia [Recovered/Resolved]

NARRATIVE: CASE EVENT DATE: 20230506
